FAERS Safety Report 16593511 (Version 2)
Quarter: 2019Q3

REPORT INFORMATION
  Report Type: Spontaneous
  Country: PT (occurrence: PT)
  Receive Date: 20190718
  Receipt Date: 20190724
  Transmission Date: 20191004
  Serious: Yes (Hospitalization)
  Sender: FDA-Public Use
  Company Number: PHHY2019PT164611

PATIENT
  Sex: Male

DRUGS (2)
  1. COSENTYX [Suspect]
     Active Substance: SECUKINUMAB
     Indication: PSORIASIS
     Dosage: UNK
     Route: 065
  2. LEVOTHYROXINE. [Concomitant]
     Active Substance: LEVOTHYROXINE
     Indication: PRODUCT USED FOR UNKNOWN INDICATION
     Route: 065

REACTIONS (10)
  - Euphoric mood [Unknown]
  - Hypothalamo-pituitary disorder [Unknown]
  - Hormone level abnormal [Unknown]
  - Hypophysitis [Recovering/Resolving]
  - Thyroid hormones decreased [Unknown]
  - Abnormal behaviour [Unknown]
  - Hypopituitarism [Recovering/Resolving]
  - Apathy [Unknown]
  - Malaise [Unknown]
  - Speech disorder [Unknown]
